FAERS Safety Report 23060886 (Version 11)
Quarter: 2024Q2

REPORT INFORMATION
  Report Type: Spontaneous
  Country: US (occurrence: US)
  Receive Date: 20231012
  Receipt Date: 20240607
  Transmission Date: 20240717
  Serious: Yes (Hospitalization, Other)
  Sender: FDA-Public Use
  Company Number: US-Blueprint Medicines Corporation-SP-US-2023-001581

PATIENT
  Age: 52 Year
  Sex: Male
  Weight: 70.748 kg

DRUGS (22)
  1. AYVAKIT [Suspect]
     Active Substance: AVAPRITINIB
     Indication: Indolent systemic mastocytosis
     Route: 048
     Dates: start: 20220330, end: 20231005
  2. AYVAKIT [Suspect]
     Active Substance: AVAPRITINIB
     Indication: Systemic mastocytosis
     Route: 065
  3. AYVAKIT [Suspect]
     Active Substance: AVAPRITINIB
     Route: 065
  4. AYVAKIT [Suspect]
     Active Substance: AVAPRITINIB
     Route: 048
     Dates: start: 20220330, end: 20231005
  5. AYVAKIT [Suspect]
     Active Substance: AVAPRITINIB
     Route: 048
     Dates: start: 20240123
  6. AYVAKIT [Suspect]
     Active Substance: AVAPRITINIB
     Route: 048
     Dates: start: 20220329
  7. AYVAKIT [Suspect]
     Active Substance: AVAPRITINIB
     Route: 048
  8. AYVAKIT [Suspect]
     Active Substance: AVAPRITINIB
     Route: 048
     Dates: start: 20240123
  9. FENTANYL [Suspect]
     Active Substance: FENTANYL\FENTANYL CITRATE
     Indication: Pain
  10. FENTANYL [Suspect]
     Active Substance: FENTANYL\FENTANYL CITRATE
     Route: 042
  11. LEVOCETIRIZINE [Suspect]
     Active Substance: LEVOCETIRIZINE
     Indication: Product used for unknown indication
     Route: 065
  12. LEVOCETIRIZINE [Suspect]
     Active Substance: LEVOCETIRIZINE
     Route: 065
  13. XOLAIR [Concomitant]
     Active Substance: OMALIZUMAB
     Indication: Product used for unknown indication
     Route: 065
  14. XOLAIR [Concomitant]
     Active Substance: OMALIZUMAB
     Route: 065
  15. AMOXICILLIN [Concomitant]
     Active Substance: AMOXICILLIN
     Indication: Prophylaxis
     Route: 065
  16. AMOXICILLIN [Concomitant]
     Active Substance: AMOXICILLIN
     Route: 065
  17. CETIRIZINE [Concomitant]
     Active Substance: CETIRIZINE HYDROCHLORIDE
     Indication: Product used for unknown indication
     Route: 065
  18. CETIRIZINE [Concomitant]
     Active Substance: CETIRIZINE HYDROCHLORIDE
     Route: 065
  19. MAGOX [Concomitant]
     Indication: Product used for unknown indication
     Dosage: 400-600MG/DAY
     Route: 065
  20. MAGOX [Concomitant]
     Route: 065
  21. CYCLOBENZAPRINE [Concomitant]
     Active Substance: CYCLOBENZAPRINE
     Indication: Product used for unknown indication
     Route: 065
  22. CYCLOBENZAPRINE [Concomitant]
     Active Substance: CYCLOBENZAPRINE
     Route: 065

REACTIONS (31)
  - Arthropathy [Unknown]
  - Back disorder [Not Recovered/Not Resolved]
  - Surgery [Unknown]
  - Back pain [Not Recovered/Not Resolved]
  - Platelet count abnormal [Not Recovered/Not Resolved]
  - Unevaluable event [Unknown]
  - Mean cell haemoglobin increased [Unknown]
  - Muscle twitching [Unknown]
  - Muscle strain [Unknown]
  - Bone pain [Not Recovered/Not Resolved]
  - Headache [Recovering/Resolving]
  - Thinking abnormal [Not Recovered/Not Resolved]
  - Tryptase increased [Not Recovered/Not Resolved]
  - Pain [Unknown]
  - Pain in extremity [Unknown]
  - Adverse drug reaction [Unknown]
  - Hypersensitivity [Unknown]
  - Depressed mood [Unknown]
  - Weight decreased [Unknown]
  - Arthralgia [Unknown]
  - Sacral pain [Unknown]
  - Neck pain [Unknown]
  - Migraine [Unknown]
  - Mobility decreased [Unknown]
  - Post lumbar puncture syndrome [Recovering/Resolving]
  - Memory impairment [Unknown]
  - Insomnia [Unknown]
  - Musculoskeletal stiffness [Not Recovered/Not Resolved]
  - Device failure [Unknown]
  - Drug ineffective [Unknown]
  - Product dose omission in error [Unknown]

NARRATIVE: CASE EVENT DATE: 20231101
